FAERS Safety Report 6016009-0 (Version None)
Quarter: 2008Q4

REPORT INFORMATION
  Report Type: 
  Country: None (occurrence: None)
  Receive Date: 20081222
  Receipt Date: 20081210
  Transmission Date: 20090506
  Serious: Yes (Death)
  Sender: FDA-Public Use
  Company Number: SK-PFIZER INC-2008156328

PATIENT

DRUGS (4)
  1. VORICONAZOLE [Suspect]
     Indication: FUNGAL INFECTION
     Dosage: 800 MG, 1X/DAY
     Dates: start: 20080416, end: 20080416
  2. VORICONAZOLE [Suspect]
     Dosage: 400 MG, 1X/DAY
     Dates: start: 20080417, end: 20080506
  3. VORICONAZOLE [Suspect]
     Dosage: 200 MG, 2X/DAY
     Dates: start: 20080506, end: 20080521
  4. FLUCONAZOLE [Concomitant]
     Dates: start: 20080414, end: 20080416

REACTIONS (1)
  - DEATH [None]
